FAERS Safety Report 4860974-1 (Version None)
Quarter: 2005Q4

REPORT INFORMATION
  Report Type: 
  Country: None (occurrence: None)
  Receive Date: 20051216
  Receipt Date: 20051201
  Transmission Date: 20060501
  Serious: Yes (Death)
  Sender: FDA-Public Use
  Company Number: A-CH2005-11172

PATIENT
  Age: 59 Year
  Sex: Male

DRUGS (7)
  1. TRACLEER [Suspect]
     Indication: PULMONARY HYPERTENSION
     Dosage: 62.5 MG, BID, ORAL
     Route: 048
     Dates: start: 20050101, end: 20050114
  2. COZAAR [Suspect]
  3. WARFARIN SODIUM [Concomitant]
  4. MIDAMOR [Concomitant]
  5. FUROSEMIDE [Concomitant]
  6. EMCONCOR (BISOPROLOL) [Concomitant]
  7. SPIRONOLACTONE [Suspect]

REACTIONS (4)
  - BLOOD ALKALINE PHOSPHATASE INCREASED [None]
  - CARDIAC FAILURE [None]
  - GAMMA-GLUTAMYLTRANSFERASE INCREASED [None]
  - PNEUMONIA [None]
